FAERS Safety Report 13338775 (Version 1)
Quarter: 2017Q1

REPORT INFORMATION
  Report Type: Report from Study
  Country: NL (occurrence: NL)
  Receive Date: 20170315
  Receipt Date: 20170315
  Transmission Date: 20170428
  Serious: Yes (Other)
  Sender: FDA-Public Use
  Company Number: NL-SA-2016SA205023

PATIENT
  Age: 4 Year
  Sex: Male

DRUGS (26)
  1. ESOMEPRAZOLE [Concomitant]
     Active Substance: ESOMEPRAZOLE
     Route: 042
     Dates: start: 20161023
  2. VANCOMYCINE [Concomitant]
     Active Substance: VANCOMYCIN
     Route: 042
     Dates: start: 20161018, end: 20161026
  3. CYCLOPHOSPHAMIDE. [Concomitant]
     Active Substance: CYCLOPHOSPHAMIDE
     Route: 042
     Dates: start: 20161101, end: 20161102
  4. THYMOGLOBULINE [Suspect]
     Active Substance: LAPINE T-LYMPHOCYTE IMMUNE GLOBULIN
     Route: 065
     Dates: start: 20161026, end: 20161029
  5. PREDNISOLONE. [Suspect]
     Active Substance: PREDNISOLONE
     Route: 065
     Dates: start: 20161105
  6. FUROSEMIDE. [Concomitant]
     Active Substance: FUROSEMIDE
     Route: 048
     Dates: start: 20161023
  7. AMLODIPINE [Concomitant]
     Active Substance: AMLODIPINE BESYLATE
     Route: 048
     Dates: start: 20161026
  8. METHYLPREDNISOLONE. [Concomitant]
     Active Substance: METHYLPREDNISOLONE
  9. ACYCLOVIR. [Concomitant]
     Active Substance: ACYCLOVIR
     Route: 042
     Dates: start: 20161026
  10. FLUDARABINE [Concomitant]
     Active Substance: FLUDARABINE PHOSPHATE
     Route: 042
     Dates: start: 20161029, end: 20161102
  11. CALCIUM CARBONATE. [Concomitant]
     Active Substance: CALCIUM CARBONATE
     Route: 042
     Dates: start: 20161018, end: 20161023
  12. URSODEOXYCHOLIC ACID [Concomitant]
     Active Substance: URSODIOL
     Route: 048
     Dates: start: 20161018
  13. ITRACONAZOLE. [Concomitant]
     Active Substance: ITRACONAZOLE
     Route: 042
     Dates: start: 20161018, end: 20161026
  14. CEFTAZIDIME. [Concomitant]
     Active Substance: CEFTAZIDIME
     Route: 042
     Dates: start: 20161022, end: 20161023
  15. ONDANSETRON [Concomitant]
     Active Substance: ONDANSETRON
     Dosage: IF NECESSARY
     Route: 042
     Dates: start: 20161023
  16. PREDNISOLONE. [Suspect]
     Active Substance: PREDNISOLONE
     Route: 065
     Dates: start: 20161026, end: 20161031
  17. PHYTOMENADIONE [Concomitant]
     Active Substance: PHYTONADIONE
     Route: 048
     Dates: start: 20161010
  18. TACROLIMUS. [Concomitant]
     Active Substance: TACROLIMUS
     Route: 048
     Dates: start: 20161018, end: 20161026
  19. TRAMADOL. [Concomitant]
     Active Substance: TRAMADOL
     Dosage: IF NECESSARY
     Route: 042
     Dates: start: 20161023
  20. AMBISOME [Concomitant]
     Active Substance: AMPHOTERICIN B
     Route: 042
     Dates: start: 20161027, end: 20161107
  21. SPIRONOLACTONE. [Concomitant]
     Active Substance: SPIRONOLACTONE
     Route: 042
     Dates: start: 20161024
  22. CLEMASTINE [Suspect]
     Active Substance: CLEMASTINE
     Route: 065
     Dates: start: 20161026
  23. METHOTREXATE. [Suspect]
     Active Substance: METHOTREXATE
     Route: 065
     Dates: start: 20161105, end: 20161110
  24. MEROPENEM. [Concomitant]
     Active Substance: MEROPENEM
     Route: 042
     Dates: start: 20161023
  25. PARACETAMOL [Concomitant]
     Active Substance: ACETAMINOPHEN
     Route: 042
     Dates: start: 20161023
  26. SANDIMMUNE [Concomitant]
     Active Substance: CYCLOSPORINE
     Route: 042
     Dates: start: 20161025

REACTIONS (1)
  - Blood bilirubin increased [Recovered/Resolved]

NARRATIVE: CASE EVENT DATE: 20161104
